FAERS Safety Report 8622033 (Version 3)
Quarter: 2012Q4

REPORT INFORMATION
  Report Type: 
  Country: CA (occurrence: CA)
  Receive Date: 20120619
  Receipt Date: 20121001
  Transmission Date: 20130627
  Serious: Yes (Hospitalization, Other)
  Sender: FDA-Public Use
  Company Number: CA-ELI_LILLY_AND_COMPANY-CA201206003818

PATIENT
  Age: 83 Year
  Sex: Female

DRUGS (10)
  1. FORTEO [Suspect]
     Indication: OSTEOPOROSIS
     Dosage: 20 ug, qd
     Route: 058
     Dates: start: 20110313
  2. TYLENOL /00020001/ [Concomitant]
     Dosage: UNK, unknown
     Route: 065
  3. RANITIDINE [Concomitant]
     Dosage: UNK, unknown
     Route: 065
  4. D-TABS [Concomitant]
     Dosage: UNK, unknown
     Route: 065
  5. CALCIUM [Concomitant]
     Dosage: UNK, unknown
     Route: 065
  6. CENTRUM [Concomitant]
     Dosage: UNK, unknown
     Route: 065
  7. HIDROXIZIN [Concomitant]
     Dosage: UNK, unknown
     Route: 065
  8. OMEGA 3 [Concomitant]
     Dosage: UNK, unknown
     Route: 065
  9. VITAMIN D [Concomitant]
     Dosage: UNK, unknown
     Route: 065
  10. BISPHOSPHONATES [Concomitant]

REACTIONS (1)
  - Bone fissure [Recovering/Resolving]
